FAERS Safety Report 4741564-8 (Version None)
Quarter: 2005Q3

REPORT INFORMATION
  Report Type: 
  Country: None (occurrence: None)
  Receive Date: 20050808
  Receipt Date: 20050727
  Transmission Date: 20060218
  Serious: Yes (Hospitalization)
  Sender: FDA-Public Use
  Company Number: CA_050708456

PATIENT
  Age: 72 Year
  Sex: Female
  Weight: 41 kg

DRUGS (16)
  1. FORTEO [Suspect]
     Indication: OSTEOPOROSIS
     Dosage: 20 UG DAY
     Dates: start: 20050702, end: 20050701
  2. CALCIUM GLUCONATE [Concomitant]
  3. VITAMIN D [Concomitant]
  4. LASIX [Concomitant]
  5. DIGOXIN [Concomitant]
  6. WARFARIN [Concomitant]
  7. ADVAIR DISKUS 100/50 [Concomitant]
  8. PAXIL [Concomitant]
  9. GLUCOSAMINE [Concomitant]
  10. TEMAZEPAM [Concomitant]
  11. ALTACE [Concomitant]
  12. FERROUS GLUCONATE) [Concomitant]
  13. NORVASC [Concomitant]
  14. ACETYLSALICYLIC ACID SRT [Concomitant]
  15. NOVO-METOPROLOL (METOPROLOL TARTRATE) [Concomitant]
  16. NTG (GLYCERYL TRINITRATE) [Concomitant]

REACTIONS (9)
  - ABASIA [None]
  - ASTHENIA [None]
  - CHILLS [None]
  - FATIGUE [None]
  - NAUSEA [None]
  - PHARMACEUTICAL PRODUCT COMPLAINT [None]
  - TREMOR [None]
  - URINARY TRACT INFECTION [None]
  - VOMITING [None]
